FAERS Safety Report 7955373-X (Version None)
Quarter: 2011Q4

REPORT INFORMATION
  Report Type: 
  Country: None (occurrence: None)
  Receive Date: 20111202
  Receipt Date: 20111128
  Transmission Date: 20120403
  Serious: Yes (Hospitalization)
  Sender: FDA-Public Use
  Company Number: PHHO2011TH018815

PATIENT
  Sex: Male
  Weight: 55.6 kg

DRUGS (5)
  1. MYFORTIC [Suspect]
     Indication: RENAL TRANSPLANT
     Dosage: 180 MG, BID
     Dates: start: 20110511, end: 20111109
  2. PROGRAF [Suspect]
     Indication: RENAL TRANSPLANT
     Dosage: 2.5 MG, BID
     Dates: start: 20110510, end: 20111109
  3. SIMULECT [Concomitant]
     Indication: RENAL TRANSPLANT
     Dosage: 20 MG, DAY 1, 4
     Dates: start: 20110510, end: 20110510
  4. PREDNISOLONE [Suspect]
     Indication: RENAL TRANSPLANT
     Dosage: 5 MG, QD
     Dates: start: 20110514, end: 20111109
  5. METHYLPREDNISOLONE [Concomitant]
     Indication: RENAL TRANSPLANT
     Dosage: 1 G, UNK
     Dates: start: 20110510, end: 20110510

REACTIONS (2)
  - LEUKOPENIA [None]
  - RENAL ARTERY STENOSIS [None]
